FAERS Safety Report 16073028 (Version 1)
Quarter: 2019Q1

REPORT INFORMATION
  Report Type: Spontaneous
  Country: DE (occurrence: DE)
  Receive Date: 20190314
  Receipt Date: 20190314
  Transmission Date: 20190418
  Serious: Yes (Other)
  Sender: FDA-Public Use
  Company Number: DE-HIKMA PHARMACEUTICALS USA INC.-DE-H14001-19-01519

PATIENT
  Age: 51 Year
  Sex: Male
  Weight: 76 kg

DRUGS (2)
  1. LEVOFLOXACIN. [Suspect]
     Active Substance: LEVOFLOXACIN
     Indication: PRODUCT USED FOR UNKNOWN INDICATION
     Dosage: 2 X 500MG T?GLICH ?BER 5 TAGE
     Route: 048
     Dates: start: 201412
  2. CIPROFLOXACIN. [Suspect]
     Active Substance: CIPROFLOXACIN
     Indication: PRODUCT USED FOR UNKNOWN INDICATION
     Dosage: 2 X 500MG ?BER 4 WOCHEN
     Dates: start: 201805

REACTIONS (8)
  - Ocular discomfort [Unknown]
  - Mental disorder [Unknown]
  - Suicidal ideation [Unknown]
  - Impaired work ability [Unknown]
  - Weight bearing difficulty [Unknown]
  - Depressed mood [Unknown]
  - Inguinal hernia [Recovered/Resolved with Sequelae]
  - Tendon rupture [Recovered/Resolved with Sequelae]

NARRATIVE: CASE EVENT DATE: 2018
